FAERS Safety Report 21867641 (Version 2)
Quarter: 2023Q1

REPORT INFORMATION
  Report Type: Spontaneous
  Country: US (occurrence: US)
  Receive Date: 20230116
  Receipt Date: 20230220
  Transmission Date: 20230418
  Serious: No
  Sender: FDA-Public Use
  Company Number: US-BRISTOL-MYERS SQUIBB COMPANY-2023-006520

PATIENT
  Age: 85 Year
  Sex: Female
  Weight: 46.27 kg

DRUGS (1)
  1. REVLIMID [Suspect]
     Active Substance: LENALIDOMIDE
     Indication: Diffuse large B-cell lymphoma
     Dosage: FREQ - DAILY FOR 21DAYS
     Route: 048
     Dates: start: 20220601

REACTIONS (3)
  - Red blood cell count decreased [Unknown]
  - Off label use [Unknown]
  - White blood cell count decreased [Unknown]
